FAERS Safety Report 17781546 (Version 1)
Quarter: 2020Q2

REPORT INFORMATION
  Report Type: Spontaneous
  Country: TW (occurrence: TW)
  Receive Date: 20200513
  Receipt Date: 20200513
  Transmission Date: 20200714
  Serious: Yes (Hospitalization)
  Sender: FDA-Public Use
  Company Number: NVSC2020TW124833

PATIENT
  Age: 71 Year
  Sex: Female

DRUGS (1)
  1. METHOTREXATE. [Suspect]
     Active Substance: METHOTREXATE
     Indication: RHEUMATOID ARTHRITIS
     Dosage: 15 MG, QW
     Route: 065

REACTIONS (11)
  - Pancytopenia [Unknown]
  - Drug level increased [Unknown]
  - Candida infection [Unknown]
  - Febrile neutropenia [Unknown]
  - Productive cough [Unknown]
  - Mouth ulceration [Unknown]
  - Ecchymosis [Unknown]
  - Asthenia [Unknown]
  - Pyrexia [Unknown]
  - Wheezing [Unknown]
  - Oedema [Unknown]
